FAERS Safety Report 6731407-5 (Version None)
Quarter: 2010Q2

REPORT INFORMATION
  Report Type: 
  Country: None (occurrence: None)
  Receive Date: 20100518
  Receipt Date: 20100518
  Transmission Date: 20101027
  Serious: Yes (Hospitalization)
  Sender: FDA-Public Use
  Company Number: None

PATIENT
  Age: 59 Year
  Sex: Male
  Weight: 119.93 kg

DRUGS (2)
  1. MOXIFLOXACIN [Suspect]
     Indication: CHRONIC OBSTRUCTIVE PULMONARY DISEASE
     Dosage: 400 MG EVERY DAY PO
     Route: 048
     Dates: start: 20100402, end: 20100408
  2. MOXIFLOXACIN [Suspect]
     Indication: RESPIRATORY DISORDER
     Dosage: 400 MG EVERY DAY PO
     Route: 048
     Dates: start: 20100402, end: 20100408

REACTIONS (3)
  - OESOPHAGEAL DISORDER [None]
  - RASH [None]
  - SWELLING [None]
